FAERS Safety Report 20684937 (Version 1)
Quarter: 2022Q2

REPORT INFORMATION
  Report Type: Spontaneous
  Country: US (occurrence: None)
  Receive Date: 20220405
  Receipt Date: 20220405
  Transmission Date: 20220720
  Serious: No
  Sender: FDA-Public Use
  Company Number: None

PATIENT
  Age: 61 Year
  Sex: Female

DRUGS (2)
  1. OPSUMIT [Suspect]
     Active Substance: MACITENTAN
     Indication: Pulmonary arterial hypertension
     Dosage: 10MG QD ORAL?
     Route: 048
     Dates: start: 20220401, end: 20220405
  2. TADALAFIL [Suspect]
     Active Substance: TADALAFIL

REACTIONS (2)
  - Palpitations [None]
  - Chills [None]

NARRATIVE: CASE EVENT DATE: 20220405
